FAERS Safety Report 25667821 (Version 1)
Quarter: 2025Q3

REPORT INFORMATION
  Report Type: Spontaneous
  Country: KR (occurrence: KR)
  Receive Date: 20250812
  Receipt Date: 20250812
  Transmission Date: 20251021
  Serious: Yes (Disabling)
  Sender: GILEAD
  Company Number: KR-GILEAD-2025-0723762

PATIENT
  Sex: Male

DRUGS (1)
  1. EPCLUSA [Suspect]
     Active Substance: SOFOSBUVIR\VELPATASVIR
     Indication: Product used for unknown indication
     Route: 065

REACTIONS (1)
  - Product prescribing issue [Not Recovered/Not Resolved]

NARRATIVE: CASE EVENT DATE: 20250807
